FAERS Safety Report 4631110-1 (Version None)
Quarter: 2005Q2

REPORT INFORMATION
  Report Type: 
  Country: None (occurrence: None)
  Receive Date: 20050406
  Receipt Date: 20050406
  Transmission Date: 20051028
  Serious: Yes (Other)
  Sender: FDA-Public Use
  Company Number: None

PATIENT
  Age: 55 Year
  Sex: Male
  Weight: 81.6475 kg

DRUGS (5)
  1. ZETIA [Suspect]
     Indication: BLOOD TRIGLYCERIDES INCREASED
     Dosage: 10 MG QD
     Dates: start: 20050310
  2. ZETIA [Suspect]
     Indication: HYPERCHOLESTEROLAEMIA
     Dosage: 10 MG QD
     Dates: start: 20050310
  3. ZETIA [Suspect]
     Indication: BLOOD TRIGLYCERIDES INCREASED
     Dosage: 10 MG QD
     Dates: start: 20050320
  4. ZETIA [Suspect]
     Indication: HYPERCHOLESTEROLAEMIA
     Dosage: 10 MG QD
     Dates: start: 20050320
  5. LIPITOR [Concomitant]

REACTIONS (13)
  - ABDOMINAL PAIN UPPER [None]
  - AMNESIA [None]
  - BRONCHITIS [None]
  - CONFUSIONAL STATE [None]
  - DEPRESSION [None]
  - DYSPNOEA [None]
  - FATIGUE [None]
  - MUSCULAR WEAKNESS [None]
  - PRURITUS [None]
  - RASH [None]
  - RHINORRHOEA [None]
  - SINUSITIS [None]
  - TREMOR [None]
